FAERS Safety Report 13954181 (Version 1)
Quarter: 2017Q3

REPORT INFORMATION
  Report Type: Spontaneous
  Country: US (occurrence: None)
  Receive Date: 20170910
  Receipt Date: 20170910
  Transmission Date: 20171128
  Serious: Yes (Hospitalization)
  Sender: FDA-Public Use
  Company Number: None

PATIENT
  Age: 14 Year
  Sex: Female

DRUGS (1)
  1. LEUKINE [Suspect]
     Active Substance: SARGRAMOSTIM
     Indication: NEOPLASM MALIGNANT
     Dosage: 275 MCG, QD FOR 6 DAYS, OUT OF 21
     Dates: start: 20151216

REACTIONS (2)
  - Neoplasm malignant [None]
  - Condition aggravated [None]

NARRATIVE: CASE EVENT DATE: 201709
